FAERS Safety Report 9745582 (Version 3)
Quarter: 2013Q4

REPORT INFORMATION
  Report Type: Report from Study
  Country: US (occurrence: US)
  Receive Date: 20131211
  Receipt Date: 20131230
  Transmission Date: 20140711
  Serious: Yes (Hospitalization)
  Sender: FDA-Public Use
  Company Number: US-BAYER-2013-138590

PATIENT
  Age: 59 Year
  Sex: Female

DRUGS (1)
  1. STIVARGA [Suspect]
     Indication: COLON CANCER
     Dosage: 160 MG, 4 X 40 MG DAILY
     Route: 048
     Dates: start: 20131109

REACTIONS (5)
  - Pneumonia [None]
  - Pyrexia [None]
  - Fatigue [None]
  - Headache [None]
  - Palmar-plantar erythrodysaesthesia syndrome [None]
